FAERS Safety Report 10264152 (Version 1)
Quarter: 2014Q2

REPORT INFORMATION
  Report Type: Spontaneous
  Country: US (occurrence: US)
  Receive Date: 20140627
  Receipt Date: 20140627
  Transmission Date: 20141212
  Serious: Yes (Hospitalization, Other)
  Sender: FDA-Public Use
  Company Number: US-AMGEN INC.-USASP2014047123

PATIENT
  Age: 70 Year
  Sex: Male

DRUGS (1)
  1. SENSIPAR [Suspect]
     Indication: HYPERPARATHYROIDISM
     Dosage: 30 MG, QD
     Route: 065

REACTIONS (4)
  - Hospitalisation [Unknown]
  - Renal transplant [Unknown]
  - Gastrointestinal tube insertion [Unknown]
  - Wrong technique in drug usage process [Unknown]
